FAERS Safety Report 4454040-7 (Version None)
Quarter: 2004Q3

REPORT INFORMATION
  Report Type: 
  Country: None (occurrence: None)
  Receive Date: 20040920
  Receipt Date: 20040908
  Transmission Date: 20050211
  Serious: Yes (Other)
  Sender: FDA-Public Use
  Company Number: US-BRISTOL-MYERS SQUIBB COMPANY-12701348

PATIENT
  Age: 42 Year
  Sex: Male

DRUGS (9)
  1. SERZONE [Suspect]
     Route: 048
     Dates: start: 19980210, end: 20020618
  2. NEURONTIN [Concomitant]
  3. FLEXERIL [Concomitant]
  4. SONATA [Concomitant]
  5. PREVACID [Concomitant]
  6. NEXIUM [Concomitant]
  7. KLONOPIN [Concomitant]
  8. AMBIEN [Concomitant]
  9. PEPCID [Concomitant]

REACTIONS (7)
  - ALANINE AMINOTRANSFERASE INCREASED [None]
  - ANXIETY [None]
  - BLOOD BILIRUBIN INCREASED [None]
  - HELICOBACTER PYLORI IDENTIFICATION TEST POSITIVE [None]
  - PANCREATITIS [None]
  - PROTEIN TOTAL INCREASED [None]
  - SUICIDAL IDEATION [None]
